FAERS Safety Report 4774983-4 (Version None)
Quarter: 2005Q3

REPORT INFORMATION
  Report Type: 
  Country: None (occurrence: None)
  Receive Date: 20050920
  Receipt Date: 20050907
  Transmission Date: 20060218
  Serious: Yes (Hospitalization, Disabling)
  Sender: FDA-Public Use
  Company Number: PL-2005-008066

PATIENT
  Age: 57 Year
  Sex: Male
  Weight: 65 kg

DRUGS (10)
  1. FLUDARA [Suspect]
     Indication: CHRONIC LYMPHOCYTIC LEUKAEMIA
     Dosage: 45 MG Q28D, INTRAVENOUS
     Route: 042
     Dates: start: 20040924, end: 20041219
  2. CYCLOPHOSPHAMIDE [Suspect]
     Indication: CHRONIC LYMPHOCYTIC LEUKAEMIA
     Dosage: 450MG/EVERY 28 DAYS, INTRAVENOUS
     Route: 042
     Dates: start: 20040924, end: 20041219
  3. FLUDARABINE PHOSPHATE AND RITUXIMAB (FLUDARABINE PHOSPHATE AND RITUXIM [Suspect]
  4. KETOPROFEN [Concomitant]
  5. ACYCLOVIR [Concomitant]
  6. COTRIMOXAZOL ^COPHAR^ [Concomitant]
  7. ETHAMSYLATE (ETAMISILATE) [Concomitant]
  8. CIMETIDINE [Concomitant]
  9. CIPROFLOXACIN HCL [Concomitant]
  10. OMEPRAZOLE [Concomitant]

REACTIONS (2)
  - ASPIRATION BONE MARROW ABNORMAL [None]
  - EVAN'S SYNDROME [None]
